FAERS Safety Report 25240501 (Version 1)
Quarter: 2025Q2

REPORT INFORMATION
  Report Type: Spontaneous
  Country: US (occurrence: US)
  Receive Date: 20250425
  Receipt Date: 20250425
  Transmission Date: 20250717
  Serious: Yes (Other)
  Sender: JOHNSON AND JOHNSON
  Company Number: US-JNJFOC-20250431652

PATIENT

DRUGS (2)
  1. STELARA [Suspect]
     Active Substance: USTEKINUMAB
     Indication: Colitis ulcerative
     Route: 058
  2. MESALAMINE [Concomitant]
     Active Substance: MESALAMINE
     Route: 048

REACTIONS (3)
  - Colitis [Unknown]
  - Infection [Unknown]
  - Blood immunoglobulin G decreased [Unknown]
